FAERS Safety Report 6660552-8 (Version None)
Quarter: 2010Q1

REPORT INFORMATION
  Report Type: 
  Country: None (occurrence: None)
  Receive Date: 20100331
  Receipt Date: 20100331
  Transmission Date: 20100710
  Serious: Yes (Hospitalization)
  Sender: FDA-Public Use
  Company Number: PHHO2007HK12532

PATIENT
  Age: 74 Year
  Sex: Female
  Weight: 63.4 kg

DRUGS (6)
  1. ACLASTA/ZOLEDRONATE T29581+A+SOLINJ [Suspect]
     Indication: OSTEOPOROSIS POSTMENOPAUSAL
     Dosage: 5 MG ONCE A YEAR
     Route: 042
     Dates: start: 20060719
  2. CALCIUM [Concomitant]
  3. VITAMIN D [Concomitant]
  4. MODURETIC 5-50 [Concomitant]
     Indication: HYPERTENSION
  5. ATENOLOL [Concomitant]
     Indication: HYPERTENSION
  6. ASPIRIN [Concomitant]
     Indication: MYOCARDIAL ISCHAEMIA

REACTIONS (6)
  - BONE PAIN [None]
  - CARDIOMEGALY [None]
  - COUGH [None]
  - PNEUMONIA INFLUENZAL [None]
  - PYREXIA [None]
  - SPUTUM DISCOLOURED [None]
